FAERS Safety Report 7687681-4 (Version None)
Quarter: 2011Q3

REPORT INFORMATION
  Report Type: 
  Country: None (occurrence: None)
  Receive Date: 20110817
  Receipt Date: 20110808
  Transmission Date: 20111222
  Serious: Yes (Hospitalization, Other)
  Sender: FDA-Public Use
  Company Number: US-BAYER-201030320NA

PATIENT
  Age: 22 Year
  Sex: Female
  Weight: 90.703 kg

DRUGS (16)
  1. ADVAIR DISKUS 100/50 [Concomitant]
     Dosage: UNK
  2. PROVENTIL [Concomitant]
  3. YAZ [Suspect]
     Indication: MENSTRUAL CYCLE MANAGEMENT
  4. OXYCODONE HCL AND ACETAMINOPHEN [Concomitant]
     Dosage: UNK
     Dates: start: 20090123
  5. YAZ [Suspect]
     Indication: CONTRACEPTION
     Dosage: UNK UNK, UNK
     Route: 048
     Dates: start: 20081101
  6. ATENOLOL [Concomitant]
     Indication: HYPERTENSION
     Dosage: 25 MG, QD
     Dates: start: 20060101
  7. AZITHROMYCIN [Concomitant]
     Dosage: UNK
     Dates: start: 20090130
  8. FLUCONAZOLE [Concomitant]
     Dosage: 150 MG, UNK
     Dates: start: 20090130
  9. HYDROCODONE BT - IBUPROFEN [Concomitant]
     Dosage: UNK
     Dates: start: 20081229
  10. TRAMADOL HCL [Concomitant]
     Dosage: 50 MG, UNK
     Dates: start: 20081231
  11. YAZ [Suspect]
     Indication: POLYCYSTIC OVARIES
  12. NITROFURANTOIN [Concomitant]
     Dosage: 100 MG, UNK
     Dates: start: 20081231
  13. AZITHROMYCIN [Concomitant]
     Dosage: 500 MG, UNK
     Dates: start: 20081205
  14. ALPRAZOLAM [Concomitant]
     Dosage: 1 MG, TID
  15. HYDROCODONE BITARTRATE AND ACETAMINOPHEN [Concomitant]
     Dosage: UNK
     Dates: start: 20081223
  16. MACROBID [Concomitant]

REACTIONS (6)
  - CHOLECYSTITIS ACUTE [None]
  - CHOLELITHIASIS [None]
  - CHOLECYSTITIS CHRONIC [None]
  - ABDOMINAL PAIN UPPER [None]
  - FAT INTOLERANCE [None]
  - MENTAL DISORDER [None]
